FAERS Safety Report 5400701-2 (Version None)
Quarter: 2007Q3

REPORT INFORMATION
  Report Type: 
  Country: None (occurrence: None)
  Receive Date: 20070730
  Receipt Date: 20070719
  Transmission Date: 20080115
  Serious: Yes (Other)
  Sender: FDA-Public Use
  Company Number: BR-PFIZER INC-2007051142

PATIENT
  Sex: Female
  Weight: 64 kg

DRUGS (1)
  1. VIBRAMICINA [Suspect]
     Indication: BACTERIAL INFECTION
     Route: 048

REACTIONS (5)
  - ABDOMINAL PAIN [None]
  - CYSTITIS [None]
  - DIZZINESS [None]
  - DRUG INEFFECTIVE [None]
  - NAUSEA [None]
